FAERS Safety Report 7589899-8 (Version None)
Quarter: 2011Q3

REPORT INFORMATION
  Report Type: 
  Country: None (occurrence: None)
  Receive Date: 20110705
  Receipt Date: 20110630
  Transmission Date: 20111222
  Serious: Yes (Hospitalization)
  Sender: FDA-Public Use
  Company Number: BR-ROCHE-786884

PATIENT
  Age: 27 Year
  Sex: Female

DRUGS (2)
  1. ACTEMRA [Suspect]
     Indication: RHEUMATOID ARTHRITIS
     Route: 065
  2. RITUXAN [Suspect]
     Indication: RHEUMATOID ARTHRITIS
     Dosage: GREQUENCY: 1 G EACH 6 MONTHS
     Route: 065

REACTIONS (3)
  - PNEUMONIA [None]
  - APLASTIC ANAEMIA [None]
  - HEPATIC ENZYME INCREASED [None]
